FAERS Safety Report 17962147 (Version 8)
Quarter: 2021Q4

REPORT INFORMATION
  Report Type: Spontaneous
  Country: US (occurrence: US)
  Receive Date: 20200630
  Receipt Date: 20211223
  Transmission Date: 20220304
  Serious: Yes (Other)
  Sender: FDA-Public Use
  Company Number: US-PFIZER INC-2017332577

PATIENT
  Age: 60 Year
  Sex: Female

DRUGS (4)
  1. LYRICA [Suspect]
     Active Substance: PREGABALIN
     Indication: Intervertebral disc degeneration
     Dosage: 300 MG, 3X/DAY
     Route: 048
  2. LYRICA [Suspect]
     Active Substance: PREGABALIN
     Indication: Fibromyalgia
     Dosage: 900 MG, DAILY
     Route: 048
  3. LYRICA [Suspect]
     Active Substance: PREGABALIN
     Dosage: 300 MG, 1X/DAY (1 CAPSULE ONCE EVERY NIGHT; DISP: 90)
     Route: 048
  4. LYRICA [Suspect]
     Active Substance: PREGABALIN
     Dosage: 300 MG, 1X/DAY (1 CAPSULE IN THE EVENING 1 TO 3 HOURS BEFORE BEDTIME ONCE A DAY FOR 90 DAYS)
     Route: 048

REACTIONS (4)
  - Drug dependence [Unknown]
  - Pain [Unknown]
  - Feeling abnormal [Unknown]
  - Prescribed overdose [Unknown]
